FAERS Safety Report 19258925 (Version 1)
Quarter: 2021Q2

REPORT INFORMATION
  Report Type: Spontaneous
  Country: US (occurrence: US)
  Receive Date: 20210514
  Receipt Date: 20210514
  Transmission Date: 20210717
  Serious: No
  Sender: FDA-Public Use
  Company Number: US-TAKEDA-2021TUS028793

PATIENT
  Sex: Female
  Weight: 72 kg

DRUGS (1)
  1. VPRIV [Suspect]
     Active Substance: VELAGLUCERASE ALFA
     Indication: GAUCHER^S DISEASE
     Dosage: 3600 INTERNATIONAL UNIT, Q2WEEKS
     Route: 065

REACTIONS (3)
  - Pregnancy [Unknown]
  - Inappropriate schedule of product administration [Unknown]
  - No adverse event [Unknown]
